FAERS Safety Report 6538052-5 (Version None)
Quarter: 2010Q1

REPORT INFORMATION
  Report Type: 
  Country: None (occurrence: None)
  Receive Date: 20100112
  Receipt Date: 20100112
  Transmission Date: 20100710
  Serious: Yes (Death)
  Sender: FDA-Public Use
  Company Number: None

PATIENT
  Age: 35 Year
  Sex: Female
  Weight: 68.9467 kg

DRUGS (1)
  1. YAZ [Suspect]
     Indication: ORAL CONTRACEPTION
     Dosage: 1 PILL DAILY PO
     Route: 048
     Dates: start: 20090326, end: 20091106

REACTIONS (37)
  - ABDOMINAL PAIN [None]
  - ACNE [None]
  - ALOPECIA [None]
  - ASTHENIA [None]
  - BACK PAIN [None]
  - BLOOD POTASSIUM INCREASED [None]
  - COUGH [None]
  - CYSTITIS [None]
  - DEPRESSION [None]
  - DIARRHOEA [None]
  - DYSMENORRHOEA [None]
  - FATIGUE [None]
  - GLUCOSE TOLERANCE DECREASED [None]
  - HEADACHE [None]
  - HYPOAESTHESIA [None]
  - INFLUENZA LIKE ILLNESS [None]
  - INSOMNIA [None]
  - MENSTRUAL DISORDER [None]
  - METRORRHAGIA [None]
  - MIGRAINE [None]
  - MUSCULOSKELETAL PAIN [None]
  - NAUSEA [None]
  - NECK PAIN [None]
  - NERVOUSNESS [None]
  - OROPHARYNGEAL PAIN [None]
  - PAIN IN EXTREMITY [None]
  - PAIN IN JAW [None]
  - PARAESTHESIA [None]
  - PYREXIA [None]
  - RENAL DISORDER [None]
  - SINUSITIS [None]
  - SUDDEN DEATH [None]
  - UPPER RESPIRATORY TRACT INFECTION [None]
  - URINARY TRACT INFECTION [None]
  - VOMITING [None]
  - VULVOVAGINAL CANDIDIASIS [None]
  - WEIGHT INCREASED [None]
